FAERS Safety Report 7020510-0 (Version None)
Quarter: 2010Q3

REPORT INFORMATION
  Report Type: 
  Country: None (occurrence: None)
  Receive Date: 20100929
  Receipt Date: 20100924
  Transmission Date: 20110219
  Serious: Yes (Disabling)
  Sender: FDA-Public Use
  Company Number: DE-SANOFI-AVENTIS-2010SA057286

PATIENT
  Age: 82 Year
  Sex: Male

DRUGS (1)
  1. MULTAQ [Suspect]
     Indication: ATRIAL FIBRILLATION
     Dosage: 400MG 2XTAGL
     Route: 048
     Dates: start: 20100113, end: 20100913

REACTIONS (2)
  - AXONAL NEUROPATHY [None]
  - POLYNEUROPATHY [None]
